FAERS Safety Report 4692444-8 (Version None)
Quarter: 2005Q2

REPORT INFORMATION
  Report Type: 
  Country: None (occurrence: None)
  Receive Date: 20050613
  Receipt Date: 20050328
  Transmission Date: 20051028
  Serious: Yes (Hospitalization)
  Sender: FDA-Public Use
  Company Number: 2004-00727

PATIENT
  Sex: Male

DRUGS (1)
  1. VELCADE [Suspect]
     Dosage: 2.60 MG, IV BOLUS
     Route: 040

REACTIONS (1)
  - ABDOMINAL PAIN [None]
